FAERS Safety Report 5282084-4 (Version None)
Quarter: 2007Q1

REPORT INFORMATION
  Report Type: 
  Country: None (occurrence: None)
  Receive Date: 20070330
  Receipt Date: 20070315
  Transmission Date: 20070707
  Serious: Yes (Hospitalization, Other)
  Sender: FDA-Public Use
  Company Number: US-PFIZER INC-2005140339

PATIENT
  Sex: Male
  Weight: 83.9 kg

DRUGS (2)
  1. BEXTRA [Suspect]
     Indication: ARTHRALGIA
  2. BEXTRA [Suspect]
     Indication: ARTHRITIS

REACTIONS (2)
  - ANGINA PECTORIS [None]
  - ARTERIOSCLEROSIS CORONARY ARTERY [None]
